FAERS Safety Report 23616769 (Version 1)
Quarter: 2024Q1

REPORT INFORMATION
  Report Type: Spontaneous
  Country: CN (occurrence: CN)
  Receive Date: 20240311
  Receipt Date: 20240311
  Transmission Date: 20240410
  Serious: Yes (Hospitalization)
  Sender: FDA-Public Use
  Company Number: CN-JNJFOC-20240314708

PATIENT
  Age: 30 Year
  Sex: Male
  Weight: 73 kg

DRUGS (2)
  1. CHILDRENS MOTRIN [Suspect]
     Active Substance: IBUPROFEN
     Indication: Upper respiratory tract infection
     Route: 048
     Dates: start: 20240215, end: 20240218
  2. CHILDRENS MOTRIN [Suspect]
     Active Substance: IBUPROFEN
     Indication: Symptomatic treatment

REACTIONS (5)
  - Product administered to patient of inappropriate age [Recovering/Resolving]
  - Urinary tract infection [Recovering/Resolving]
  - Penile ulceration [Recovering/Resolving]
  - Fixed eruption [Recovering/Resolving]
  - Allergy test positive [Recovering/Resolving]

NARRATIVE: CASE EVENT DATE: 20240201
